FAERS Safety Report 10167332 (Version 1)
Quarter: 2014Q2

REPORT INFORMATION
  Report Type: Spontaneous
  Country: BR (occurrence: BR)
  Receive Date: 20140512
  Receipt Date: 20140512
  Transmission Date: 20141212
  Serious: Yes (Hospitalization, Other)
  Sender: FDA-Public Use
  Company Number: BR-JNJFOC-20140503705

PATIENT
  Age: 70 Year
  Sex: Female
  Weight: 59 kg

DRUGS (1)
  1. SIMPONI [Suspect]
     Indication: RHEUMATOID ARTHRITIS
     Route: 058
     Dates: start: 201401

REACTIONS (5)
  - Femur fracture [Unknown]
  - Herpes virus infection [Unknown]
  - Red blood cell sedimentation rate abnormal [Unknown]
  - Gait disturbance [Unknown]
  - Fall [Unknown]
